FAERS Safety Report 22250904 (Version 1)
Quarter: 2023Q2

REPORT INFORMATION
  Report Type: Spontaneous
  Country: AU (occurrence: None)
  Receive Date: 20230425
  Receipt Date: 20230425
  Transmission Date: 20230721
  Serious: Yes (Other)
  Sender: FDA-Public Use
  Company Number: 2023A089016

PATIENT
  Sex: Male

DRUGS (8)
  1. BUDESONIDE [Suspect]
     Active Substance: BUDESONIDE
     Route: 055
  2. FOLATE SODIUM [Suspect]
     Active Substance: FOLATE SODIUM
  3. MERCAPTOPURINE [Suspect]
     Active Substance: MERCAPTOPURINE
  4. INFLIXIMAB [Suspect]
     Active Substance: INFLIXIMAB
  5. AZATHIOPRINE [Suspect]
     Active Substance: AZATHIOPRINE
  6. METHOTREXATE [Suspect]
     Active Substance: METHOTREXATE
  7. TACROLIMUS [Suspect]
     Active Substance: TACROLIMUS
  8. VEDOLIZUMAB [Suspect]
     Active Substance: VEDOLIZUMAB

REACTIONS (7)
  - Urosepsis [Unknown]
  - C-reactive protein increased [Unknown]
  - Drug intolerance [Unknown]
  - Infection [Unknown]
  - Inflammatory marker increased [Unknown]
  - Pyrexia [Unknown]
  - Off label use [Unknown]
